FAERS Safety Report 17579121 (Version 2)
Quarter: 2020Q4

REPORT INFORMATION
  Report Type: Report from Study
  Country: None (occurrence: US)
  Receive Date: 20200325
  Receipt Date: 20201119
  Transmission Date: 20210113
  Serious: Yes (Other)
  Sender: FDA-Public Use
  Company Number: US-ABBVIE-20K-163-3335258-00

PATIENT
  Age: 55 Year
  Sex: Female

DRUGS (1)
  1. HUMIRA [Suspect]
     Active Substance: ADALIMUMAB
     Indication: RHEUMATOID ARTHRITIS
     Dosage: CITRATE FREE
     Route: 058

REACTIONS (11)
  - Device related infection [Recovered/Resolved]
  - Influenza [Unknown]
  - Renal failure [Unknown]
  - Fall [Unknown]
  - Nephropathy [Unknown]
  - Head injury [Unknown]
  - Pneumonia [Unknown]
  - Pain [Unknown]
  - Viral infection [Unknown]
  - Blood test abnormal [Not Recovered/Not Resolved]
  - Escherichia infection [Recovered/Resolved]

NARRATIVE: CASE EVENT DATE: 201910
